FAERS Safety Report 6573178-1 (Version None)
Quarter: 2010Q1

REPORT INFORMATION
  Report Type: 
  Country: None (occurrence: None)
  Receive Date: 20100208
  Receipt Date: 20100203
  Transmission Date: 20100710
  Serious: Yes (Hospitalization)
  Sender: FDA-Public Use
  Company Number: US-B.I. PHARMACEUTICALS,INC./RIDGEFIELD-2009-BP-13684BP

PATIENT
  Sex: Female

DRUGS (14)
  1. SPIRIVA [Suspect]
     Indication: CHRONIC OBSTRUCTIVE PULMONARY DISEASE
     Dosage: 18 MCG
     Dates: start: 20050101
  2. SPIRIVA [Suspect]
     Indication: EMPHYSEMA
  3. ATROVENT HFA [Suspect]
     Indication: CHRONIC OBSTRUCTIVE PULMONARY DISEASE
     Dates: start: 20050101
  4. ALBUTEROL [Suspect]
     Indication: CHRONIC OBSTRUCTIVE PULMONARY DISEASE
     Dates: start: 20050101
  5. ADVAIR DISKUS 100/50 [Concomitant]
  6. DILTIAZEM HCL [Concomitant]
  7. SINGULAIR [Concomitant]
  8. BUPROPION HCL [Concomitant]
  9. SIMVASTATIN [Concomitant]
  10. PEPCID [Concomitant]
  11. IMDUR [Concomitant]
  12. MUCINEX [Concomitant]
  13. VASOTEC [Concomitant]
  14. PREDNISONE [Concomitant]

REACTIONS (3)
  - DYSPNOEA [None]
  - HAEMORRHAGE [None]
  - VESSEL PERFORATION [None]
